FAERS Safety Report 5636215-4 (Version None)
Quarter: 2008Q1

REPORT INFORMATION
  Report Type: 
  Country: None (occurrence: None)
  Receive Date: 20080219
  Receipt Date: 20080208
  Transmission Date: 20080703
  Serious: Yes (Other)
  Sender: FDA-Public Use
  Company Number: 2008RL000050

PATIENT
  Age: 63 Year
  Sex: Male

DRUGS (2)
  1. LOVAZA [Suspect]
     Indication: ILL-DEFINED DISORDER
     Dosage: PO, 1000 MG, QD; PO
     Route: 048
     Dates: start: 20070110, end: 20070605
  2. LOVAZA [Suspect]
     Indication: ILL-DEFINED DISORDER
     Dosage: PO, 1000 MG, QD; PO
     Route: 048
     Dates: start: 20070901, end: 20071010

REACTIONS (3)
  - PARAPARESIS [None]
  - SELF-MEDICATION [None]
  - THROMBOCYTOPENIA [None]
